FAERS Safety Report 8312357 (Version 6)
Quarter: 2016Q2

REPORT INFORMATION
  Report Type: Report from Study
  Country: RU (occurrence: RU)
  Receive Date: 20111227
  Receipt Date: 20160504
  Transmission Date: 20160815
  Serious: Yes (Death, Hospitalization, Other)
  Sender: FDA-Public Use
  Company Number: PHHO2011RU021396

PATIENT
  Age: 47 Year
  Sex: Male
  Weight: 79 kg

DRUGS (4)
  1. KETOROLAC [Suspect]
     Active Substance: KETOROLAC\KETOROLAC TROMETHAMINE
     Indication: PAIN
     Dosage: 10 MG X 8, DAILY
     Route: 048
     Dates: start: 20111210, end: 20111216
  2. SPASGAN [Concomitant]
     Indication: PAIN
     Dosage: UNK
     Route: 065
     Dates: start: 20111210
  3. ENALAPRIL [Suspect]
     Active Substance: ENALAPRIL
     Indication: CARDIAC FAILURE
     Dosage: 5 MG, BID
     Route: 048
     Dates: start: 20100111, end: 20111221
  4. PHENAZEPAM [Concomitant]
     Active Substance: PHENAZEPAM
     Indication: PAIN
     Dosage: UNK
     Route: 065
     Dates: start: 20111210

REACTIONS (14)
  - Hepatitis acute [Not Recovered/Not Resolved]
  - Erosive oesophagitis [Unknown]
  - Disease progression [Unknown]
  - Completed suicide [Fatal]
  - Pneumonia [Unknown]
  - Pulmonary embolism [Not Recovered/Not Resolved]
  - Gastritis erosive [Unknown]
  - Ischaemic cardiomyopathy [Not Recovered/Not Resolved]
  - Cardiac failure [Not Recovered/Not Resolved]
  - Multiple organ dysfunction syndrome [Not Recovered/Not Resolved]
  - Concomitant disease progression [Not Recovered/Not Resolved]
  - Cardiac ventricular thrombosis [Recovered/Resolved]
  - Cholestasis [Unknown]
  - Hepatorenal syndrome [Not Recovered/Not Resolved]

NARRATIVE: CASE EVENT DATE: 201111
